FAERS Safety Report 7490808-0 (Version None)
Quarter: 2011Q1

REPORT INFORMATION
  Report Type: 
  Country: None (occurrence: None)
  Receive Date: 20110317
  Receipt Date: 20110104
  Transmission Date: 20110831
  Serious: Yes (Hospitalization)
  Sender: FDA-Public Use
  Company Number: 2011S1000028

PATIENT
  Sex: Female

DRUGS (1)
  1. VENLAFAXINE HCL EXTENDED-RELEASE [Suspect]
     Dosage: PO
     Route: 048

REACTIONS (2)
  - SUICIDE ATTEMPT [None]
  - BEZOAR [None]
